FAERS Safety Report 5916053-5 (Version None)
Quarter: 2008Q4

REPORT INFORMATION
  Report Type: 
  Country: None (occurrence: None)
  Receive Date: 20081013
  Receipt Date: 20081008
  Transmission Date: 20090506
  Serious: Yes (Hospitalization)
  Sender: FDA-Public Use
  Company Number: FR-BRISTOL-MYERS SQUIBB COMPANY-14364541

PATIENT
  Age: 79 Year
  Sex: Female

DRUGS (4)
  1. COAPROVEL [Suspect]
     Indication: HYPERTENSION
     Dates: end: 20080911
  2. DEROXAT [Suspect]
     Indication: DEPRESSION
     Dates: end: 20080911
  3. SOLIAN [Suspect]
     Indication: DEPRESSION
  4. FRACTAL [Concomitant]

REACTIONS (4)
  - BLOOD CREATININE INCREASED [None]
  - DRUG TOXICITY [None]
  - HYPOKALAEMIA [None]
  - VENTRICULAR ARRHYTHMIA [None]
